FAERS Safety Report 9070935 (Version 1)
Quarter: 2013Q1

REPORT INFORMATION
  Report Type: Spontaneous
  Country: JP (occurrence: JP)
  Receive Date: 20130129
  Receipt Date: 20130129
  Transmission Date: 20140127
  Serious: Yes (Hospitalization)
  Sender: FDA-Public Use
  Company Number: JP-GLAXOSMITHKLINE-B0587670A

PATIENT
  Sex: Female

DRUGS (2)
  1. FLOLAN [Suspect]
     Indication: PULMONARY ARTERIAL HYPERTENSION
     Route: 042
     Dates: start: 2007
  2. OXYGEN THERAPY [Concomitant]

REACTIONS (12)
  - Adrenocorticotropic hormone deficiency [Recovering/Resolving]
  - Altered state of consciousness [Recovering/Resolving]
  - Malaise [Recovered/Resolved]
  - Hypophagia [Recovered/Resolved]
  - Psychiatric symptom [Recovered/Resolved]
  - Menstruation irregular [Unknown]
  - Nausea [Unknown]
  - Hyponatraemia [Unknown]
  - Disorientation [Unknown]
  - Headache [Recovered/Resolved]
  - Secondary adrenocortical insufficiency [Unknown]
  - Blood sodium decreased [Unknown]
